FAERS Safety Report 5025473-5 (Version None)
Quarter: 2006Q2

REPORT INFORMATION
  Report Type: 
  Country: None (occurrence: None)
  Receive Date: 20060608
  Receipt Date: 20060526
  Transmission Date: 20061013
  Serious: Yes (Hospitalization)
  Sender: FDA-Public Use
  Company Number: 2006S1000099

PATIENT
  Age: 79 Year
  Sex: Male

DRUGS (4)
  1. CUBICIN [Suspect]
     Indication: ENDOCARDITIS
     Dosage: 500 MG; Q24H; IV
     Route: 042
  2. ACID SUPPRESSOR [Concomitant]
  3. ANTIDEPRESSANT [Concomitant]
  4. ENLARGED PROSTATE MEDICATION [Concomitant]

REACTIONS (11)
  - ATELECTASIS [None]
  - EOSINOPHILIA [None]
  - FIBROSIS [None]
  - HYPOXIA [None]
  - LOBAR PNEUMONIA [None]
  - NIGHT SWEATS [None]
  - PLATELET COUNT INCREASED [None]
  - PNEUMONITIS [None]
  - POST PROCEDURAL COMPLICATION [None]
  - PULMONARY EMBOLISM [None]
  - UPPER RESPIRATORY TRACT INFECTION [None]
